FAERS Safety Report 8236284-1 (Version None)
Quarter: 2012Q1

REPORT INFORMATION
  Report Type: 
  Country: None (occurrence: None)
  Receive Date: 20120327
  Receipt Date: 20120315
  Transmission Date: 20120608
  Serious: Yes (Other)
  Sender: FDA-Public Use
  Company Number: DE-BAYER-2012-025876

PATIENT
  Age: 27 Year
  Sex: Female
  Weight: 70 kg

DRUGS (1)
  1. MIRENA [Suspect]
     Dosage: UNK
     Dates: start: 20100315

REACTIONS (7)
  - AMENORRHOEA [None]
  - DEPRESSION [None]
  - SLEEP DISORDER [None]
  - FATIGUE [None]
  - IMPAIRED WORK ABILITY [None]
  - ANXIETY [None]
  - MOOD SWINGS [None]
